FAERS Safety Report 8187241-5 (Version None)
Quarter: 2012Q1

REPORT INFORMATION
  Report Type: 
  Country: None (occurrence: None)
  Receive Date: 20120306
  Receipt Date: 20120221
  Transmission Date: 20120608
  Serious: Yes (Death)
  Sender: FDA-Public Use
  Company Number: NZ-ROCHE-1045043

PATIENT

DRUGS (1)
  1. ALTEPLASE [Suspect]
     Indication: EMBOLIC STROKE

REACTIONS (2)
  - HAEMORRHAGIC TRANSFORMATION STROKE [None]
  - HAEMORRHAGE INTRACRANIAL [None]
